FAERS Safety Report 7943048-2 (Version None)
Quarter: 2011Q4

REPORT INFORMATION
  Report Type: 
  Country: None (occurrence: None)
  Receive Date: 20111128
  Receipt Date: 20111117
  Transmission Date: 20120403
  Serious: Yes (Other)
  Sender: FDA-Public Use
  Company Number: US-BAYER-2011-112180

PATIENT
  Sex: Male

DRUGS (1)
  1. AVELOX [Suspect]
     Indication: PNEUMONIA
     Dosage: 400 MG, QD, AVELOX ABC PACK TABLET 400MG STANDARD PACKAGE BOTTLE OF 5
     Route: 048

REACTIONS (3)
  - DYSPNOEA [None]
  - MUSCLE SPASMS [None]
  - TREMOR [None]
